FAERS Safety Report 24061093 (Version 3)
Quarter: 2025Q4

REPORT INFORMATION
  Report Type: Spontaneous
  Country: US (occurrence: US)
  Receive Date: 20240708
  Receipt Date: 20251009
  Transmission Date: 20260118
  Serious: Yes (Other)
  Sender: PFIZER
  Company Number: US-PFIZER INC-2020294465

PATIENT
  Age: 78 Year
  Sex: Female

DRUGS (1)
  1. IBRANCE [Suspect]
     Active Substance: PALBOCICLIB
     Indication: Breast cancer female
     Dosage: 75 MG
     Route: 048

REACTIONS (4)
  - Bone density abnormal [Unknown]
  - Infection [Unknown]
  - Rash [Unknown]
  - Arthropathy [Unknown]
